FAERS Safety Report 16096436 (Version 1)
Quarter: 2019Q1

REPORT INFORMATION
  Report Type: Spontaneous
  Country: FR (occurrence: FR)
  Receive Date: 20190320
  Receipt Date: 20190320
  Transmission Date: 20190418
  Serious: Yes (Hospitalization, Other)
  Sender: FDA-Public Use
  Company Number: FR-TAKEDA-2019TUS014928

PATIENT
  Age: 57 Year
  Sex: Female

DRUGS (1)
  1. ENTYVIO [Suspect]
     Active Substance: VEDOLIZUMAB
     Indication: COLITIS ULCERATIVE
     Dosage: 300 MILLIGRAM, Q4WEEKS
     Route: 042
     Dates: start: 201605

REACTIONS (4)
  - Kaposi^s sarcoma [Unknown]
  - Cytomegalovirus viraemia [Unknown]
  - Colitis ulcerative [Unknown]
  - Human herpes virus 8 test positive [Unknown]
